FAERS Safety Report 8743488 (Version 3)
Quarter: 2012Q4

REPORT INFORMATION
  Report Type: Report from Study
  Country: DE (occurrence: DE)
  Receive Date: 20120824
  Receipt Date: 20121228
  Transmission Date: 20130627
  Serious: Yes (Hospitalization)
  Sender: FDA-Public Use
  Company Number: DE-ROCHE-1076714

PATIENT
  Age: 4 Year
  Sex: Male
  Weight: 14.65 kg

DRUGS (70)
  1. VALGANCICLOVIR [Suspect]
     Indication: RENAL TRANSPLANT
     Dosage: 300 mg was last dose prior to SAE on 27/Jul/2012, last dose taken 400 mg daily
     Route: 048
     Dates: start: 20120515
  2. COTRIMOXAZOLE [Concomitant]
     Indication: PROPHYLAXIS
     Route: 048
     Dates: start: 20120515
  3. ATENOLOL [Concomitant]
     Indication: HYPERTENSION
     Route: 048
     Dates: start: 20120608
  4. ATENOLOL [Concomitant]
     Route: 048
     Dates: start: 20120528, end: 20120605
  5. ATENOLOL [Concomitant]
     Route: 065
     Dates: start: 20120801
  6. MYCOPHENOLATE MOFETIL [Concomitant]
     Indication: IMMUNOSUPPRESSION
     Route: 048
     Dates: start: 20120611
  7. MYCOPHENOLATE MOFETIL [Concomitant]
     Route: 048
     Dates: start: 20120515, end: 20120528
  8. MYCOPHENOLATE MOFETIL [Concomitant]
     Route: 048
     Dates: start: 20120529, end: 20120605
  9. MYCOPHENOLATE MOFETIL [Concomitant]
     Route: 046
     Dates: start: 20120724, end: 20120728
  10. RAMIPRIL [Concomitant]
     Indication: HYPERTENSION
     Route: 048
     Dates: start: 20120611
  11. RAMIPRIL [Concomitant]
     Route: 048
     Dates: start: 20120404, end: 20120514
  12. RAMIPRIL [Concomitant]
     Route: 065
     Dates: start: 20120607, end: 20120610
  13. NATRIUMHYDROGENCARBONAT [Concomitant]
     Indication: METABOLIC ACIDOSIS
     Route: 048
     Dates: start: 20120710
  14. NATRIUMHYDROGENCARBONAT [Concomitant]
     Route: 048
     Dates: start: 20120404, end: 20120514
  15. NATRIUMHYDROGENCARBONAT [Concomitant]
     Route: 048
     Dates: start: 20120803, end: 20120820
  16. NATRIUMHYDROGENCARBONAT [Concomitant]
     Route: 048
     Dates: start: 20120728, end: 20120802
  17. CYCLOSPORIN A [Concomitant]
     Indication: IMMUNOSUPPRESSION
     Route: 048
     Dates: start: 20120609
  18. CYCLOSPORIN A [Concomitant]
     Route: 065
     Dates: start: 20120515, end: 20120603
  19. CYCLOSPORIN A [Concomitant]
     Route: 048
     Dates: start: 20120604, end: 20120606
  20. CYCLOSPORIN A [Concomitant]
     Route: 048
     Dates: start: 20120607, end: 20120608
  21. CYCLOSPORIN A [Concomitant]
     Route: 048
     Dates: start: 20120515, end: 20120515
  22. CYCLOSPORIN A [Concomitant]
     Route: 065
     Dates: start: 20120625, end: 20120715
  23. CYCLOSPORIN A [Concomitant]
     Route: 065
     Dates: start: 20120716, end: 20120728
  24. CYCLOSPORIN A [Concomitant]
     Route: 048
     Dates: start: 20120729, end: 20120813
  25. METHYLPREDNISOLON [Concomitant]
     Indication: IMMUNOSUPPRESSION
     Route: 048
     Dates: start: 20120614
  26. METHYLPREDNISOLON [Concomitant]
     Route: 048
     Dates: start: 20120515, end: 20120517
  27. METHYLPREDNISOLON [Concomitant]
     Route: 048
     Dates: start: 20120518, end: 20120522
  28. METHYLPREDNISOLON [Concomitant]
     Route: 048
     Dates: start: 20120523, end: 20120528
  29. METHYLPREDNISOLON [Concomitant]
     Route: 048
     Dates: start: 20120529, end: 20120604
  30. METHYLPREDNISOLON [Concomitant]
     Route: 048
     Dates: start: 20120605, end: 20120606
  31. METHYLPREDNISOLON [Concomitant]
     Route: 048
     Dates: start: 20120612, end: 20120613
  32. METHYLPREDNISOLON [Concomitant]
     Route: 048
     Dates: start: 20120607, end: 20120611
  33. METHYLPREDNISOLON [Concomitant]
     Route: 048
     Dates: start: 20120728, end: 20120806
  34. IRON [Concomitant]
     Route: 048
     Dates: start: 20120404, end: 20120514
  35. ALFACALCIDOL [Concomitant]
     Indication: HYPERPARATHYROIDISM SECONDARY
     Dosage: 4 drops
     Route: 048
     Dates: start: 20120404, end: 20120514
  36. COLECALCIFEROL [Concomitant]
     Route: 048
     Dates: start: 20120404, end: 20120514
  37. FUROSEMIDE [Concomitant]
     Indication: RENAL FAILURE
     Route: 048
     Dates: start: 20120404, end: 20120514
  38. FUROSEMIDE [Concomitant]
     Route: 042
     Dates: start: 20120515, end: 20120520
  39. FUROSEMIDE [Concomitant]
     Route: 042
     Dates: start: 20120608, end: 20120610
  40. SOMATROPIN [Concomitant]
     Indication: MICROSOMIA
     Route: 058
     Dates: start: 20120404, end: 20120514
  41. EPOETIN [Concomitant]
     Indication: NEPHROGENIC ANAEMIA
     Route: 058
     Dates: start: 20120404, end: 20120514
  42. METAMIZOL [Concomitant]
     Route: 048
     Dates: start: 20120521, end: 20120521
  43. METAMIZOL [Concomitant]
     Route: 042
     Dates: start: 20120515, end: 20120519
  44. METAMIZOL [Concomitant]
     Route: 042
     Dates: start: 20120605, end: 20120607
  45. TRAMADOL [Concomitant]
     Route: 042
     Dates: start: 20120515, end: 20120517
  46. PANTOPRAZOL [Concomitant]
     Indication: GASTRITIS PROPHYLAXIS
     Route: 048
     Dates: start: 20120515, end: 20120531
  47. PANTOPRAZOL [Concomitant]
     Route: 048
     Dates: start: 20120724, end: 20120813
  48. STEROFUNDIN [Concomitant]
     Route: 042
     Dates: start: 20120515, end: 20120521
  49. STEROFUNDIN [Concomitant]
     Route: 042
     Dates: start: 20120606, end: 20120606
  50. STEROFUNDIN [Concomitant]
     Route: 042
     Dates: start: 20120607, end: 20120612
  51. PARACETAMOL [Concomitant]
     Route: 065
     Dates: start: 20120515, end: 20120515
  52. PARACETAMOL [Concomitant]
     Route: 065
     Dates: start: 20120516, end: 20120516
  53. PARACETAMOL [Concomitant]
     Route: 065
     Dates: start: 20120520, end: 20120521
  54. PARACETAMOL [Concomitant]
     Route: 065
     Dates: start: 20120605, end: 20120605
  55. HEPARIN [Concomitant]
     Route: 042
     Dates: start: 20120515, end: 20120521
  56. POTASSIUM CHLORIDE [Concomitant]
     Indication: HYPOKALAEMIA
     Route: 042
     Dates: start: 20120519, end: 20120519
  57. DIMENHYDRINAT [Concomitant]
     Route: 042
     Dates: start: 20120606, end: 20120606
  58. MAGNESIUM [Concomitant]
     Indication: HYPOMAGNESAEMIA
     Route: 048
     Dates: start: 20120611
  59. NIFEDIPIN [Concomitant]
     Indication: HYPERTENSION
     Route: 065
     Dates: start: 20120610, end: 20120610
  60. CICLOSPORIN [Concomitant]
     Route: 048
     Dates: start: 20120516, end: 20120516
  61. CICLOSPORIN [Concomitant]
     Route: 048
     Dates: start: 20120517, end: 20120517
  62. CICLOSPORIN [Concomitant]
     Route: 048
     Dates: start: 20120518, end: 20120518
  63. CICLOSPORIN [Concomitant]
     Route: 065
     Dates: start: 20120519, end: 20120520
  64. CICLOSPORIN [Concomitant]
     Route: 048
     Dates: start: 20120521, end: 20120521
  65. CICLOSPORIN [Concomitant]
     Route: 048
     Dates: start: 20120522, end: 20120522
  66. CICLOSPORIN [Concomitant]
     Route: 048
     Dates: start: 20120523, end: 20120523
  67. CICLOSPORIN [Concomitant]
     Route: 048
     Dates: start: 20120524, end: 20120524
  68. CICLOSPORIN [Concomitant]
     Route: 048
     Dates: start: 20120525, end: 20120525
  69. CICLOSPORIN [Concomitant]
     Route: 048
     Dates: start: 20120528, end: 20120528
  70. CICLOSPORIN [Concomitant]
     Route: 048
     Dates: start: 20120530, end: 20120603

REACTIONS (3)
  - Infection [Recovered/Resolved]
  - Neutropenia [Not Recovered/Not Resolved]
  - Rotavirus infection [Recovered/Resolved]
